FAERS Safety Report 15885213 (Version 4)
Quarter: 2019Q3

REPORT INFORMATION
  Report Type: Spontaneous
  Country: US (occurrence: US)
  Receive Date: 20190129
  Receipt Date: 20190913
  Transmission Date: 20191004
  Serious: Yes (Hospitalization)
  Sender: FDA-Public Use
  Company Number: US-VIFOR (INTERNATIONAL) INC.-VIT-2019-00621

PATIENT
  Age: 63 Year
  Sex: Male

DRUGS (12)
  1. VELTASSA [Suspect]
     Active Substance: PATIROMER
     Indication: BLOOD POTASSIUM INCREASED
     Route: 048
     Dates: start: 20190305
  2. VELTASSA [Suspect]
     Active Substance: PATIROMER
     Route: 048
     Dates: start: 201901
  3. CARVEDILOL. [Concomitant]
     Active Substance: CARVEDILOL
  4. HYDRALAZINE [Concomitant]
     Active Substance: HYDRALAZINE HYDROCHLORIDE
     Dates: start: 201901
  5. HUMALOG [Concomitant]
     Active Substance: INSULIN LISPRO
     Dosage: AT DINNER
     Dates: start: 201901
  6. SODIUM BICARBONATE. [Concomitant]
     Active Substance: SODIUM BICARBONATE
     Route: 042
  7. NORCO [Concomitant]
     Active Substance: ACETAMINOPHEN\HYDROCODONE BITARTRATE
     Dosage: 10/325 MG 1/2 DOSE
     Dates: start: 201901
  8. HUMALOG [Concomitant]
     Active Substance: INSULIN LISPRO
     Dates: start: 201901
  9. HYDRALAZINE [Concomitant]
     Active Substance: HYDRALAZINE HYDROCHLORIDE
     Dates: start: 201901
  10. SODIUM BICARBONATE. [Concomitant]
     Active Substance: SODIUM BICARBONATE
  11. NORCO [Concomitant]
     Active Substance: ACETAMINOPHEN\HYDROCODONE BITARTRATE
     Dates: start: 201901
  12. VELTASSA [Suspect]
     Active Substance: PATIROMER
     Indication: HYPERKALAEMIA
     Dosage: TOTAL 3 DOSES
     Route: 048
     Dates: start: 20181210, end: 20181212

REACTIONS (6)
  - Leg amputation [Unknown]
  - Ill-defined disorder [Unknown]
  - Product administration interrupted [Unknown]
  - Malaise [Unknown]
  - Hospitalisation [Unknown]
  - Inappropriate schedule of product administration [Unknown]

NARRATIVE: CASE EVENT DATE: 20181212
